FAERS Safety Report 8844337 (Version 2)
Quarter: 2012Q4

REPORT INFORMATION
  Report Type: 
  Country: US (occurrence: US)
  Receive Date: 20121017
  Receipt Date: 20121106
  Transmission Date: 20130627
  Serious: Yes (Hospitalization, Other)
  Sender: FDA-Public Use
  Company Number: US-SANOFI-AVENTIS-2012SA074194

PATIENT
  Age: 82 Year
  Sex: Male
  Weight: 74.54 kg

DRUGS (18)
  1. LANTUS SOLOSTAR [Suspect]
     Indication: TYPE 2 DIABETES MELLITUS
     Dosage: Dose:10 unit(s)
     Route: 058
     Dates: start: 2007
  2. SOLOSTAR [Suspect]
     Indication: TYPE 2 DIABETES MELLITUS
     Dates: start: 2007
  3. APIDRA [Suspect]
     Indication: TYPE 2 DIABETES MELLITUS
     Route: 058
     Dates: start: 2007
  4. PANTOPRAZOLE [Concomitant]
  5. CARVEDILOL [Concomitant]
  6. ZYRTEC [Concomitant]
  7. FUROSEMIDE [Concomitant]
  8. AMLODIPINE BESILATE [Concomitant]
  9. LOSARTAN [Concomitant]
  10. POTASSIUM CHLORIDE [Concomitant]
  11. ASPIRIN [Concomitant]
  12. FOLIC ACID [Concomitant]
  13. CENTRUM [Concomitant]
  14. CALCIUM [Concomitant]
  15. VITAMIN D [Concomitant]
  16. TAMSULOSIN HYDROCHLORIDE [Concomitant]
  17. LEVOCETIRIZINE [Concomitant]
  18. GABAPENTIN [Concomitant]

REACTIONS (3)
  - Arthropathy [Unknown]
  - Spinal fracture [Unknown]
  - Cardiac failure congestive [Unknown]
